FAERS Safety Report 5257752-0 (Version None)
Quarter: 2007Q1

REPORT INFORMATION
  Report Type: 
  Country: None (occurrence: None)
  Receive Date: 20070302
  Receipt Date: 20070219
  Transmission Date: 20070707
  Serious: Yes (Life-Threatening, Hospitalization)
  Sender: FDA-Public Use
  Company Number: GXKR2007JP01802

PATIENT
  Sex: Female

DRUGS (1)
  1. RANITIDINE [Suspect]
     Dosage: TRANSPLACENTAL
     Route: 064

REACTIONS (5)
  - APGAR SCORE LOW [None]
  - CAESAREAN SECTION [None]
  - CONVULSION NEONATAL [None]
  - DRUG EXPOSURE DURING PREGNANCY [None]
  - FOETAL HEART RATE DECREASED [None]
